FAERS Safety Report 11324803 (Version 2)
Quarter: 2015Q4

REPORT INFORMATION
  Report Type: Spontaneous
  Country: US (occurrence: US)
  Receive Date: 20150730
  Receipt Date: 20151002
  Transmission Date: 20160304
  Serious: Yes (Other)
  Sender: FDA-Public Use
  Company Number: US-JNJFOC-20150722109

PATIENT
  Sex: Female

DRUGS (23)
  1. IMBRUVICA [Suspect]
     Active Substance: IBRUTINIB
     Indication: CHRONIC LYMPHOCYTIC LEUKAEMIA
     Route: 048
     Dates: start: 20140605
  2. LOSARTAN POTASSIUM. [Concomitant]
     Active Substance: LOSARTAN POTASSIUM
  3. ZOCOR [Concomitant]
     Active Substance: SIMVASTATIN
  4. NASONEX [Concomitant]
     Active Substance: MOMETASONE FUROATE
  5. SYMBICORT [Concomitant]
     Active Substance: BUDESONIDE\FORMOTEROL FUMARATE DIHYDRATE
  6. VITAMIN B12 [Concomitant]
     Active Substance: CYANOCOBALAMIN
  7. COQ10 [Concomitant]
     Active Substance: UBIDECARENONE
  8. IVIG GAMMA GLOBULIN [Concomitant]
  9. TYLENOL [Concomitant]
     Active Substance: ACETAMINOPHEN
  10. OSTEO BI-FLEX [Concomitant]
     Active Substance: CHONDROITIN SULFATE A\GLUCOSAMINE
  11. FAMOTIDINE. [Concomitant]
     Active Substance: FAMOTIDINE
  12. PRAVASTATIN [Concomitant]
     Active Substance: PRAVASTATIN\PRAVASTATIN SODIUM
  13. ATENOLOL. [Concomitant]
     Active Substance: ATENOLOL
  14. METFORMIN [Concomitant]
     Active Substance: METFORMIN HYDROCHLORIDE
  15. VALSARTAN. [Concomitant]
     Active Substance: VALSARTAN
  16. CLARITIN [Concomitant]
     Active Substance: LORATADINE
  17. FLAXSEED [Concomitant]
     Active Substance: FLAX SEED
  18. PROAIR HFA [Concomitant]
     Active Substance: ALBUTEROL SULFATE
  19. VALTREX [Concomitant]
     Active Substance: VALACYCLOVIR HYDROCHLORIDE
  20. VITAMIN C [Concomitant]
     Active Substance: ASCORBIC ACID
  21. SINGULAIR [Concomitant]
     Active Substance: MONTELUKAST SODIUM
  22. FOSAMAX [Concomitant]
     Active Substance: ALENDRONATE SODIUM
  23. CARVEDILOL. [Concomitant]
     Active Substance: CARVEDILOL

REACTIONS (1)
  - Stress cardiomyopathy [Unknown]
